FAERS Safety Report 25779259 (Version 1)
Quarter: 2025Q3

REPORT INFORMATION
  Report Type: Spontaneous
  Country: US (occurrence: None)
  Receive Date: 20250909
  Receipt Date: 20250909
  Transmission Date: 20251021
  Serious: Yes (Hospitalization)
  Sender: FDA-CTU
  Company Number: None

PATIENT
  Age: 65 Year
  Sex: Female
  Weight: 53.2 kg

DRUGS (8)
  1. FLUOROURACIL [Suspect]
     Active Substance: FLUOROURACIL
     Dates: end: 20250817
  2. CAMPTOSAR [Suspect]
     Active Substance: IRINOTECAN HYDROCHLORIDE
     Dates: end: 20250815
  3. LEUCOVORIN CALCIUM [Suspect]
     Active Substance: LEUCOVORIN CALCIUM
     Dates: end: 20250815
  4. ELOXATIN [Suspect]
     Active Substance: OXALIPLATIN
     Dates: end: 20250815
  5. METOCLOPRAMIDE [Concomitant]
     Active Substance: METOCLOPRAMIDE
  6. MIRTAZAPINE [Concomitant]
     Active Substance: MIRTAZAPINE
  7. PANTOPRAZOLE [Concomitant]
     Active Substance: PANTOPRAZOLE
  8. Cyanocobalmine [Concomitant]

REACTIONS (14)
  - Febrile neutropenia [None]
  - Anaemia [None]
  - Thrombocytopenia [None]
  - Hyponatraemia [None]
  - Liver function test increased [None]
  - White blood cell count decreased [None]
  - Clostridium test positive [None]
  - Acinetobacter test positive [None]
  - Culture urine positive [None]
  - Chest pain [None]
  - Dyspnoea [None]
  - Atrial fibrillation [None]
  - Odynophagia [None]
  - Oesophagitis [None]

NARRATIVE: CASE EVENT DATE: 20250824
